FAERS Safety Report 5059102-1 (Version None)
Quarter: 2006Q3

REPORT INFORMATION
  Report Type: 
  Country: None (occurrence: None)
  Receive Date: 20060718
  Receipt Date: 20060707
  Transmission Date: 20061208
  Serious: Yes (Life-Threatening, Other)
  Sender: FDA-Public Use
  Company Number: 2006084646

PATIENT
  Age: 12 Year
  Sex: Female
  Weight: 40 kg

DRUGS (2)
  1. GENOTROPIN [Suspect]
     Indication: GROWTH HORMONE DEFICIENCY
     Dosage: (1.8 MG EVERY DAY) SUBCUTANEOUS
     Route: 058
     Dates: start: 20041209, end: 20060419
  2. VIVELLE [Concomitant]

REACTIONS (4)
  - NEOPLASM RECURRENCE [None]
  - RADIATION INJURY [None]
  - SPINAL DISORDER [None]
  - TERATOMA BENIGN [None]
